FAERS Safety Report 24816000 (Version 1)
Quarter: 2025Q1

REPORT INFORMATION
  Report Type: Spontaneous
  Country: BG (occurrence: BG)
  Receive Date: 20250107
  Receipt Date: 20250107
  Transmission Date: 20250409
  Serious: Yes (Other)
  Sender: RANBAXY
  Company Number: BG-SUN PHARMACEUTICAL INDUSTRIES LTD-2024RR-487519

PATIENT
  Age: 20 Year
  Sex: Female

DRUGS (11)
  1. RISPERIDONE [Suspect]
     Active Substance: RISPERIDONE
     Indication: Psychotic disorder
     Route: 065
  2. QUETIAPINE [Suspect]
     Active Substance: QUETIAPINE
     Indication: Psychotic disorder
     Route: 065
  3. ARIPIPRAZOLE [Suspect]
     Active Substance: ARIPIPRAZOLE
     Indication: Psychotic disorder
     Route: 065
  4. HALOPERIDOL [Suspect]
     Active Substance: HALOPERIDOL
     Indication: Psychotic disorder
     Dosage: 15 MILLIGRAM, DAILY
     Route: 030
  5. DIAZEPAM [Suspect]
     Active Substance: DIAZEPAM
     Indication: Psychotic disorder
     Route: 030
  6. LEVETIRACETAM [Suspect]
     Active Substance: LEVETIRACETAM
     Indication: Psychotic disorder
     Dosage: 2000 MILLIGRAM, DAILY
     Route: 065
  7. VALPROIC ACID [Suspect]
     Active Substance: VALPROIC ACID
     Indication: Psychotic disorder
     Dosage: 600 MILLIGRAM, DAILY
     Route: 065
  8. VALPROIC ACID [Suspect]
     Active Substance: VALPROIC ACID
     Dosage: 1000 MILLIGRAM, DAILY
     Route: 065
  9. ZUCLOPENTHIXOL [Suspect]
     Active Substance: ZUCLOPENTHIXOL
     Indication: Psychotic disorder
     Dosage: 50 MILLIGRAM, BID
     Route: 030
  10. ZUCLOPENTHIXOL [Suspect]
     Active Substance: ZUCLOPENTHIXOL
     Dosage: 30 MILLIGRAM, DAILY
     Route: 065
  11. EVEROLIMUS [Suspect]
     Active Substance: EVEROLIMUS
     Indication: Psychotic disorder
     Dosage: 10 MILLIGRAM, DAILY
     Route: 065

REACTIONS (5)
  - Weight increased [Unknown]
  - Therapeutic product effect incomplete [Unknown]
  - Dyslipidaemia [Unknown]
  - Disease recurrence [Unknown]
  - Extrapyramidal disorder [Unknown]
